FAERS Safety Report 13971411 (Version 1)
Quarter: 2017Q3

REPORT INFORMATION
  Report Type: Spontaneous
  Country: US (occurrence: US)
  Receive Date: 20170914
  Receipt Date: 20170914
  Transmission Date: 20171128
  Serious: No
  Sender: FDA-Public Use
  Company Number: US-ASTELLAS-2017US015239

PATIENT
  Age: 67 Year
  Sex: Male

DRUGS (1)
  1. XTANDI [Suspect]
     Active Substance: ENZALUTAMIDE
     Indication: PROSTATE CANCER
     Route: 048

REACTIONS (6)
  - Fatigue [Recovering/Resolving]
  - Arthralgia [Recovering/Resolving]
  - Paraesthesia [Recovering/Resolving]
  - Pain in extremity [Recovering/Resolving]
  - Pain [Recovering/Resolving]
  - Asthenia [Recovering/Resolving]

NARRATIVE: CASE EVENT DATE: 201704
